FAERS Safety Report 8456544-9 (Version None)
Quarter: 2012Q2

REPORT INFORMATION
  Report Type: 
  Country: None (occurrence: None)
  Receive Date: 20120621
  Receipt Date: 20120611
  Transmission Date: 20120825
  Serious: Yes (Hospitalization)
  Sender: FDA-Public Use
  Company Number: DE-ABBOTT-12P-062-0927516-00

PATIENT
  Sex: Female
  Weight: 80 kg

DRUGS (14)
  1. OMEPRAZOLE [Concomitant]
     Indication: PRODUCT USED FOR UNKNOWN INDICATION
     Dosage: 20MG DAILY DOSE
  2. DIOVAN HCT [Concomitant]
     Indication: HYPERTENSIVE HEART DISEASE
     Dosage: 160MG/12.5MG
  3. ASPIRIN [Concomitant]
     Indication: THROMBOSIS PROPHYLAXIS
  4. CELEBREX [Concomitant]
     Indication: PRODUCT USED FOR UNKNOWN INDICATION
  5. TILIDIN [Concomitant]
     Indication: PRODUCT USED FOR UNKNOWN INDICATION
  6. SIMVASTATIN [Concomitant]
     Indication: PRODUCT USED FOR UNKNOWN INDICATION
  7. PREDNISOLONE [Concomitant]
     Indication: RHEUMATOID ARTHRITIS
     Dosage: 5 MG DAILY DOSE
  8. PLAVIX [Concomitant]
     Indication: THROMBOSIS PROPHYLAXIS
  9. VALORON 50 [Concomitant]
     Indication: PRODUCT USED FOR UNKNOWN INDICATION
  10. HUMIRA [Suspect]
     Indication: RHEUMATOID ARTHRITIS
     Route: 058
     Dates: start: 20110513
  11. VERAPAMIL (ISOPTIN) 120 [Concomitant]
     Indication: TACHYCARDIA
  12. CALCICLAC [Concomitant]
     Indication: PRODUCT USED FOR UNKNOWN INDICATION
     Dosage: OD
  13. LEVOTHYROXINE SODIUM [Concomitant]
     Indication: HYPOTHYROIDISM
  14. VALSARTAN [Concomitant]
     Indication: PRODUCT USED FOR UNKNOWN INDICATION

REACTIONS (4)
  - ACUTE RESPIRATORY FAILURE [None]
  - LEFT VENTRICULAR FAILURE [None]
  - PNEUMONIA [None]
  - BRONCHITIS [None]
